FAERS Safety Report 15373108 (Version 2)
Quarter: 2018Q4

REPORT INFORMATION
  Report Type: Spontaneous
  Country: US (occurrence: US)
  Receive Date: 20180912
  Receipt Date: 20181009
  Transmission Date: 20190204
  Serious: Yes (Other)
  Sender: FDA-Public Use
  Company Number: US-009507513-1808USA009631

PATIENT
  Age: 29 Year
  Sex: Female
  Weight: 114.7 kg

DRUGS (10)
  1. ADDERALL [Concomitant]
     Active Substance: AMPHETAMINE ASPARTATE\AMPHETAMINE SULFATE\DEXTROAMPHETAMINE SACCHARATE\DEXTROAMPHETAMINE SULFATE
     Dosage: UNK
  2. NEXPLANON [Suspect]
     Active Substance: ETONOGESTREL
     Indication: CONTRACEPTION
     Dosage: LEFT UPPER INNER ARM, FREQUENCY 1
     Route: 059
     Dates: start: 20180716, end: 20181001
  3. VOLTAREN [Concomitant]
     Active Substance: DICLOFENAC SODIUM
  4. DULERA [Concomitant]
     Active Substance: FORMOTEROL FUMARATE DIHYDRATE\MOMETASONE FUROATE
  5. SINGULAIR [Concomitant]
     Active Substance: MONTELUKAST SODIUM
  6. NEXPLANON [Suspect]
     Active Substance: ETONOGESTREL
     Dosage: 1 UNK, UNK
  7. FLUTICASONE. [Concomitant]
     Active Substance: FLUTICASONE
  8. ALBUTEROL. [Concomitant]
     Active Substance: ALBUTEROL
  9. GABAPENTIN. [Concomitant]
     Active Substance: GABAPENTIN
  10. NEXPLANON [Suspect]
     Active Substance: ETONOGESTREL
     Dosage: UNK

REACTIONS (5)
  - Implant site pain [Not Recovered/Not Resolved]
  - Implant site bruising [Not Recovered/Not Resolved]
  - Device deployment issue [Recovered/Resolved]
  - Device dislocation [Recovered/Resolved]
  - Implant site swelling [Not Recovered/Not Resolved]

NARRATIVE: CASE EVENT DATE: 2018
